FAERS Safety Report 8402875-8 (Version None)
Quarter: 2012Q2

REPORT INFORMATION
  Report Type: 
  Country: None (occurrence: None)
  Receive Date: 20120601
  Receipt Date: 20120524
  Transmission Date: 20120825
  Serious: Yes (Hospitalization)
  Sender: FDA-Public Use
  Company Number: US-GLAXOSMITHKLINE-A0774911A

PATIENT
  Age: 40 Year
  Sex: Female
  Weight: 77.1 kg

DRUGS (2)
  1. AVANDIA [Suspect]
     Indication: DIABETES MELLITUS
     Dosage: 6MG PER DAY
     Route: 048
  2. AVANDAMET [Suspect]
     Indication: DIABETES MELLITUS
     Route: 048
     Dates: start: 20030101

REACTIONS (4)
  - CHEST PAIN [None]
  - PAIN IN EXTREMITY [None]
  - CARDIAC DISORDER [None]
  - DYSPNOEA [None]
